FAERS Safety Report 8578250-2 (Version None)
Quarter: 2012Q3

REPORT INFORMATION
  Report Type: 
  Country: None (occurrence: None)
  Receive Date: 20120808
  Receipt Date: 20120806
  Transmission Date: 20120928
  Serious: Yes (Death)
  Sender: FDA-Public Use
  Company Number: CA-ABBOTT-12P-028-0964556-00

PATIENT
  Sex: Male
  Weight: 85.806 kg

DRUGS (1)
  1. LUPRON DEPOT [Suspect]
     Indication: PROSTATE CANCER
     Dosage: 3 MONTH DEPOT
     Route: 030
     Dates: start: 20060101, end: 20120515

REACTIONS (2)
  - MALAISE [None]
  - MYOCARDIAL INFARCTION [None]
